FAERS Safety Report 7357417-5 (Version None)
Quarter: 2011Q1

REPORT INFORMATION
  Report Type: 
  Country: None (occurrence: None)
  Receive Date: 20110317
  Receipt Date: 20100921
  Transmission Date: 20110831
  Serious: Yes (Hospitalization, Other)
  Sender: FDA-Public Use
  Company Number: US-BAYER-201016993NA

PATIENT
  Sex: Female
  Weight: 79.365 kg

DRUGS (13)
  1. PAXIL [Concomitant]
     Indication: PANIC ATTACK
  2. EFFEXOR [Concomitant]
     Indication: PANIC ATTACK
  3. ALPRAZOLAM [Concomitant]
     Indication: PANIC ATTACK
  4. CLONAZEPAM [Concomitant]
     Indication: PANIC ATTACK
     Dosage: UNK
     Dates: start: 20030101
  5. YASMIN [Suspect]
     Indication: ORAL CONTRACEPTION
     Dosage: UNK
     Route: 048
     Dates: start: 20020301, end: 20040101
  6. EFFEXOR [Concomitant]
     Indication: ANXIETY
  7. ALPRAZOLAM [Concomitant]
     Indication: ANXIETY
     Dosage: UNK
     Dates: start: 20030101, end: 20040101
  8. YASMIN [Suspect]
     Indication: OVARIAN CYST
  9. ALBUTEROL [Concomitant]
     Indication: ASTHMA
     Dosage: UNK
     Route: 055
     Dates: start: 20030101, end: 20040101
  10. PAXIL [Concomitant]
     Indication: ANXIETY
     Dosage: UNK
     Dates: start: 20030101, end: 20040101
  11. PROTONIX [Concomitant]
  12. KLONOPIN [Concomitant]
     Indication: ANXIETY
     Dosage: UNK UNK, PRN
  13. UNCODEABLE ^UNCLASSIFIABLE^ [Concomitant]

REACTIONS (4)
  - CHOLECYSTITIS CHRONIC [None]
  - GALLBLADDER DISORDER [None]
  - CHOLELITHIASIS [None]
  - BILE DUCT STONE [None]
